FAERS Safety Report 9108403 (Version 1)
Quarter: 2013Q1

REPORT INFORMATION
  Report Type: Spontaneous
  Country: GB (occurrence: GB)
  Receive Date: 20130222
  Receipt Date: 20130222
  Transmission Date: 20140127
  Serious: Yes (Other)
  Sender: FDA-Public Use
  Company Number: PHHY2013GB015710

PATIENT
  Age: 77 Year
  Sex: Female

DRUGS (1)
  1. CODEINE PHOSPHATE [Suspect]
     Dates: start: 20130205

REACTIONS (1)
  - Hallucination [Recovered/Resolved]
